FAERS Safety Report 9591246 (Version 1)
Quarter: 2013Q4

REPORT INFORMATION
  Report Type: Spontaneous
  Country: US (occurrence: US)
  Receive Date: 20131003
  Receipt Date: 20131003
  Transmission Date: 20140711
  Serious: No
  Sender: FDA-Public Use
  Company Number: US-AMGEN-USASP2012080756

PATIENT
  Sex: Female
  Weight: 62.59 kg

DRUGS (5)
  1. ENBREL [Suspect]
     Indication: PSORIATIC ARTHROPATHY
     Dosage: UNK UNK, QWK
  2. CALCIUM VITAMIN D [Concomitant]
     Dosage: UNK
  3. VITAMIN D                          /00107901/ [Concomitant]
  4. FLEXERIL                           /00428402/ [Concomitant]
     Dosage: UNK
  5. ETODOLAC [Concomitant]
     Dosage: UNK

REACTIONS (1)
  - Drug ineffective [Unknown]
